FAERS Safety Report 11417101 (Version 2)
Quarter: 2015Q4

REPORT INFORMATION
  Report Type: Report from Study
  Country: US (occurrence: US)
  Receive Date: 20150825
  Receipt Date: 20151109
  Transmission Date: 20160304
  Serious: Yes (Other)
  Sender: FDA-Public Use
  Company Number: US-AMGEN-USASL2015085181

PATIENT
  Age: 48 Year
  Sex: Female

DRUGS (1)
  1. ENBREL [Suspect]
     Active Substance: ETANERCEPT
     Indication: RHEUMATOID ARTHRITIS
     Dosage: UNK UNK, QWK
     Route: 065

REACTIONS (9)
  - Systemic lupus erythematosus [Unknown]
  - Pain [Unknown]
  - Inflammatory marker increased [Unknown]
  - Inflammation [Not Recovered/Not Resolved]
  - Bursitis [Not Recovered/Not Resolved]
  - Influenza like illness [Unknown]
  - Laboratory test abnormal [Unknown]
  - Fatigue [Unknown]
  - Latent tuberculosis [Recovered/Resolved]
